FAERS Safety Report 10425240 (Version 2)
Quarter: 2014Q3

REPORT INFORMATION
  Report Type: Spontaneous
  Country: JP (occurrence: JP)
  Receive Date: 20140902
  Receipt Date: 20140917
  Transmission Date: 20150326
  Serious: Yes (Death)
  Sender: FDA-Public Use
  Company Number: JP-TAKEDA-2014TUS008071

PATIENT
  Age: 87 Year
  Sex: Female

DRUGS (9)
  1. WARFARIN [Concomitant]
     Active Substance: WARFARIN
     Dosage: 0.5 MG, QD
     Dates: end: 20140821
  2. ARGAMATE [Concomitant]
     Active Substance: POLYSTYRENE
     Indication: HYPERKALAEMIA
     Dosage: 50 G, QD
     Route: 048
     Dates: end: 20140821
  3. FEBURIC [Suspect]
     Active Substance: FEBUXOSTAT
     Indication: HYPERURICAEMIA
     Dosage: 10 MG, QD
     Route: 048
     Dates: start: 20140808, end: 20140821
  4. LIPIDIL [Suspect]
     Active Substance: FENOFIBRATE
     Indication: DYSLIPIDAEMIA
     Dosage: 80 MG, UNK
     Route: 048
     Dates: start: 20140808, end: 20140821
  5. MIYA-BM [Concomitant]
     Active Substance: CLOSTRIDIUM BUTYRICUM SPORES STRAIN M-55
     Indication: PRODUCT USED FOR UNKNOWN INDICATION
     Dosage: 4 DF, QD
     Route: 048
     Dates: end: 20140821
  6. ADALAT CC [Concomitant]
     Active Substance: NIFEDIPINE
     Indication: HYPERTENSION
     Dosage: 20 MG, QD
     Route: 048
     Dates: end: 20140821
  7. SUMILU STICK [Concomitant]
     Indication: PRODUCT USED FOR UNKNOWN INDICATION
     Route: 061
  8. SELTOUCH [Concomitant]
     Active Substance: FELBINAC
     Indication: PRODUCT USED FOR UNKNOWN INDICATION
     Route: 061
  9. WARFARIN [Concomitant]
     Active Substance: WARFARIN
     Indication: MYOCARDIAL INFARCTION
     Dosage: 1 MG, QD
     Route: 048
     Dates: end: 20140821

REACTIONS (1)
  - Drug-induced liver injury [Fatal]

NARRATIVE: CASE EVENT DATE: 20140822
